FAERS Safety Report 14734621 (Version 1)
Quarter: 2018Q2

REPORT INFORMATION
  Report Type: Spontaneous
  Country: US (occurrence: US)
  Receive Date: 20180403
  Receipt Date: 20180403
  Transmission Date: 20180711
  Serious: No
  Sender: FDA-Public Use
  Company Number: None

PATIENT
  Age: 38 Year
  Sex: Male
  Weight: 126.3 kg

DRUGS (1)
  1. BAUSCH + LOMB ADVANCED EYE RELIEF EYE WASH [Suspect]
     Active Substance: WATER
     Indication: SENSATION OF FOREIGN BODY
     Route: 047
     Dates: start: 20180402, end: 20180402

REACTIONS (4)
  - Keratitis [None]
  - Discomfort [None]
  - Pain [None]
  - Erythema [None]

NARRATIVE: CASE EVENT DATE: 20180402
